FAERS Safety Report 12992044 (Version 1)
Quarter: 2016Q4

REPORT INFORMATION
  Report Type: Spontaneous
  Country: DE (occurrence: DE)
  Receive Date: 20161201
  Receipt Date: 20161201
  Transmission Date: 20170207
  Serious: Yes (Hospitalization)
  Sender: FDA-Public Use
  Company Number: DE-TEVA-714532GER

PATIENT
  Age: 55 Year
  Sex: Male

DRUGS (9)
  1. CEFACLOR. [Suspect]
     Active Substance: CEFACLOR
     Route: 048
     Dates: start: 20160223
  2. ZYPREXA [Suspect]
     Active Substance: OLANZAPINE
     Route: 048
     Dates: start: 20160225, end: 20160226
  3. CLONT (METRONIDAZOLE) [Suspect]
     Active Substance: METRONIDAZOLE
     Route: 048
     Dates: start: 20160223
  4. CEFACLOR. [Suspect]
     Active Substance: CEFACLOR
     Route: 048
     Dates: start: 20160222
  5. CLONT (METRONIDAZOLE) [Suspect]
     Active Substance: METRONIDAZOLE
     Route: 048
     Dates: start: 20160222
  6. ZYPREXA [Suspect]
     Active Substance: OLANZAPINE
     Route: 048
     Dates: start: 20160222
  7. ZYPREXA [Suspect]
     Active Substance: OLANZAPINE
     Route: 048
     Dates: start: 20160223, end: 20160224
  8. TAVOR (LORAZEPAM) [Concomitant]
     Active Substance: LORAZEPAM
     Route: 048
     Dates: start: 20160222
  9. TAVOR (LORAZEPAM) [Concomitant]
     Active Substance: LORAZEPAM
     Route: 048
     Dates: start: 20160223

REACTIONS (4)
  - Musculoskeletal pain [None]
  - Tongue biting [None]
  - Fall [None]
  - Generalised tonic-clonic seizure [Recovered/Resolved]

NARRATIVE: CASE EVENT DATE: 20160223
